FAERS Safety Report 7909506 (Version 3)
Quarter: 2013Q2

REPORT INFORMATION
  Report Type: Spontaneous
  Country: US (occurrence: US)
  Receive Date: 20110421
  Receipt Date: 20130523
  Transmission Date: 20140414
  Serious: Yes (Hospitalization, Other)
  Sender: FDA-Public Use
  Company Number: US-ASTRAZENECA-2011SE03909

PATIENT
  Age: 60 Year
  Sex: Female

DRUGS (1)
  1. TOPROL XL [Suspect]
     Route: 048

REACTIONS (3)
  - Aortic aneurysm [Unknown]
  - Blood cholesterol abnormal [Unknown]
  - Nausea [Unknown]
